FAERS Safety Report 23825380 (Version 2)
Quarter: 2024Q3

REPORT INFORMATION
  Report Type: Spontaneous
  Country: US (occurrence: US)
  Receive Date: 20240507
  Receipt Date: 20240806
  Transmission Date: 20241016
  Serious: Yes (Other)
  Sender: BRISTOL MYERS SQUIBB
  Company Number: US-BRISTOL-MYERS SQUIBB COMPANY-2024-067447

PATIENT
  Age: 74 Year
  Sex: Male
  Weight: 5.41 kg

DRUGS (3)
  1. OPDIVO [Suspect]
     Active Substance: NIVOLUMAB
     Indication: Melanoma recurrent
     Dosage: DOSE : UNAVAILABLE;     FREQ : EVERY 3 WEEKS
     Route: 042
     Dates: start: 20240312
  2. YERVOY [Suspect]
     Active Substance: IPILIMUMAB
     Indication: Melanoma recurrent
     Route: 042
     Dates: start: 20240312
  3. ASPIRIN [Concomitant]
     Active Substance: ASPIRIN
     Indication: Product used for unknown indication

REACTIONS (13)
  - Dizziness [Unknown]
  - Musculoskeletal stiffness [Unknown]
  - Myocardial infarction [Unknown]
  - Weight decreased [Unknown]
  - Periarthritis [Unknown]
  - Blindness unilateral [Unknown]
  - Pruritus [Unknown]
  - Fatigue [Unknown]
  - Vision blurred [Unknown]
  - Eye swelling [Unknown]
  - Hepatic enzyme increased [Unknown]
  - Urinary incontinence [Unknown]
  - Rhinorrhoea [Unknown]

NARRATIVE: CASE EVENT DATE: 20240301
